FAERS Safety Report 9257945 (Version 2)
Quarter: 2014Q1

REPORT INFORMATION
  Report Type: Spontaneous
  Country: US (occurrence: None)
  Receive Date: 20121212
  Receipt Date: 20130314
  Transmission Date: 20141002
  Serious: No
  Sender: FDA-Public Use
  Company Number: 1208USA001164

PATIENT
  Age: 65 Year
  Sex: Female

DRUGS (3)
  1. PEG-INTRON [Suspect]
     Indication: HEPATITIS C
     Dates: start: 20120720
  2. REBETOL [Suspect]
     Indication: HEPATITIS C
     Dates: start: 20120720, end: 20120918
  3. VICTRELIS [Suspect]
     Indication: HEPATITIS C
     Dates: start: 20120817, end: 20120918

REACTIONS (14)
  - Pain [None]
  - Peripheral coldness [None]
  - Haemoglobin decreased [None]
  - Fatigue [None]
  - Asthenia [None]
  - Headache [None]
  - Dry skin [None]
  - Dry mouth [None]
  - Fatigue [None]
  - Asthenia [None]
  - Chills [None]
  - Poor quality sleep [None]
  - Asthenia [None]
  - Rash [None]
